APPROVED DRUG PRODUCT: ROPIVACAINE HYDROCHLORIDE
Active Ingredient: ROPIVACAINE HYDROCHLORIDE
Strength: 200MG/100ML (2MG/ML)
Dosage Form/Route: SOLUTION;INJECTION
Application: A210102 | Product #001 | TE Code: AP
Applicant: GLAND PHARMA LTD
Approved: Aug 18, 2022 | RLD: No | RS: No | Type: RX